FAERS Safety Report 8823529 (Version 1)
Quarter: 2012Q4

REPORT INFORMATION
  Report Type: 
  Country: US (occurrence: US)
  Receive Date: 20121003
  Receipt Date: 20121003
  Transmission Date: 20130627
  Serious: No
  Sender: FDA-Public Use
  Company Number: US-VERTEX PHARMACEUTICAL INC.-2012-021089

PATIENT

DRUGS (4)
  1. INCIVEK [Suspect]
     Indication: HEPATITIS C
     Dosage: 750 mg, tid
     Route: 048
     Dates: start: 20120908
  2. PEGINTERFERON ALFA [Suspect]
     Indication: HEPATITIS C
     Dosage: UNK
     Route: 058
     Dates: start: 20120907
  3. RIBAVIRIN [Suspect]
     Indication: HEPATITIS C
     Dosage: UNK, bid
     Route: 048
  4. LOSARTAN [Concomitant]
     Indication: HYPERTENSION
     Dosage: 12.5 mg, qd
     Route: 048

REACTIONS (1)
  - Pyrexia [Not Recovered/Not Resolved]
